FAERS Safety Report 19455690 (Version 1)
Quarter: 2021Q2

REPORT INFORMATION
  Report Type: Report from Study
  Country: None (occurrence: US)
  Receive Date: 20210624
  Receipt Date: 20210624
  Transmission Date: 20210717
  Serious: Yes (Other)
  Sender: FDA-Public Use
  Company Number: US-ABBVIE-21K-163-3961558-00

PATIENT
  Sex: Male

DRUGS (3)
  1. HUMIRA [Suspect]
     Active Substance: ADALIMUMAB
     Dosage: CITRATE FREE DAY 22 AND EVERY OTHER WEEKS THEREAFTER
     Route: 058
  2. HUMIRA [Suspect]
     Active Substance: ADALIMUMAB
     Dosage: CITRATE FREE DAY 8
     Route: 058
  3. HUMIRA [Suspect]
     Active Substance: ADALIMUMAB
     Indication: PSORIASIS
     Dosage: CITRATE FREE DAY 1
     Route: 058

REACTIONS (4)
  - Therapeutic product effect decreased [Not Recovered/Not Resolved]
  - Depression [Unknown]
  - Psoriasis [Not Recovered/Not Resolved]
  - Suicidal ideation [Unknown]
